FAERS Safety Report 22079394 (Version 1)
Quarter: 2023Q1

REPORT INFORMATION
  Report Type: Spontaneous
  Country: SI (occurrence: SI)
  Receive Date: 20230309
  Receipt Date: 20230309
  Transmission Date: 20230417
  Serious: Yes (Other)
  Sender: FDA-Public Use
  Company Number: None

PATIENT
  Age: 43 Year
  Sex: Female

DRUGS (3)
  1. ABILIFY MAINTENA [Suspect]
     Active Substance: ARIPIPRAZOLE
     Indication: Schizophrenia
     Dosage: 400 MG (EVERY 3-3.5 WEEKS)
     Route: 030
     Dates: start: 201512, end: 20220923
  2. OLANZAPINE [Concomitant]
     Active Substance: OLANZAPINE
     Indication: Product used for unknown indication
     Dosage: 2.5 MG, QD (IN THE EVENING)
     Route: 065
     Dates: start: 201907
  3. SERTRALINE [Concomitant]
     Active Substance: SERTRALINE HYDROCHLORIDE
     Indication: Product used for unknown indication
     Dosage: 150 MG, QD (IN THE MORNING)
     Route: 065
     Dates: start: 202007

REACTIONS (18)
  - Pallor [Recovered/Resolved]
  - Hypohidrosis [Recovered/Resolved]
  - Visual impairment [Recovered/Resolved]
  - Epistaxis [Recovered/Resolved]
  - Thirst [Recovered/Resolved]
  - Disturbance in attention [Recovered/Resolved]
  - Lethargy [Recovered/Resolved]
  - Hypothermia [Recovered/Resolved]
  - Headache [Recovered/Resolved]
  - Restlessness [Recovered/Resolved]
  - Sedation [Recovered/Resolved]
  - Insomnia [Recovered/Resolved]
  - Somnolence [Recovered/Resolved]
  - Syncope [Recovered/Resolved]
  - Pyrexia [Recovered/Resolved]
  - Anxiety [Recovered/Resolved]
  - Hyperhidrosis [Recovered/Resolved]
  - Inappropriate schedule of product administration [Unknown]

NARRATIVE: CASE EVENT DATE: 20151201
